FAERS Safety Report 10362816 (Version 1)
Quarter: 2014Q3

REPORT INFORMATION
  Report Type: Spontaneous
  Country: IT (occurrence: IT)
  Receive Date: 20140805
  Receipt Date: 20140805
  Transmission Date: 20150326
  Serious: Yes (Other)
  Sender: FDA-Public Use
  Company Number: IT-TEVA-498024ISR

PATIENT
  Age: 72 Year
  Sex: Female

DRUGS (3)
  1. LEDERFOLIN - 25 MG POLVERE PER SOLUZIONE INIETTABILE [Concomitant]
     Indication: COLON CANCER
     Dosage: 160 MG
     Route: 042
     Dates: start: 20140515, end: 20140703
  2. OXALIPLATINO ACCORD HEALTHCARE [Suspect]
     Active Substance: OXALIPLATIN
     Indication: COLON CANCER
     Dosage: 160 MG CYCLICAL
     Route: 042
     Dates: start: 20140515, end: 20140703
  3. FLUOROURACIL. [Suspect]
     Active Substance: FLUOROURACIL
     Indication: COLON CANCER
     Dosage: 4650 MG CYCLICAL
     Route: 042
     Dates: start: 20140515, end: 20140703

REACTIONS (4)
  - Tachycardia [Recovered/Resolved]
  - Dyspnoea [Recovered/Resolved]
  - Muscle tightness [Recovered/Resolved]
  - Hypertension [Recovered/Resolved]

NARRATIVE: CASE EVENT DATE: 20140703
